FAERS Safety Report 12569214 (Version 1)
Quarter: 2016Q3

REPORT INFORMATION
  Report Type: Spontaneous
  Country: US (occurrence: US)
  Receive Date: 20160719
  Receipt Date: 20160719
  Transmission Date: 20161109
  Serious: Yes (Disabling, Other)
  Sender: FDA-Public Use
  Company Number: US-AUROBINDO-AUR-APL-2016-09316

PATIENT
  Age: 30 Year
  Sex: Female

DRUGS (3)
  1. PANTOPRAZOLE [Concomitant]
     Active Substance: PANTOPRAZOLE SODIUM
     Indication: NAUSEA
     Dosage: UNK
     Route: 065
  2. MOXIFLOXACIN 400MG [Suspect]
     Active Substance: MOXIFLOXACIN
     Indication: OROPHARYNGEAL PAIN
     Dosage: 400 MG, UNK
     Route: 065
  3. MOXIFLOXACIN 400MG [Suspect]
     Active Substance: MOXIFLOXACIN
     Indication: PYREXIA
     Dosage: 400 MG, UNK
     Route: 065

REACTIONS (33)
  - Seizure [Unknown]
  - Dyspnoea [Unknown]
  - Myalgia [Unknown]
  - Fatigue [Unknown]
  - Impaired gastric emptying [Unknown]
  - Weight decreased [Unknown]
  - Mood swings [Unknown]
  - Amnesia [Unknown]
  - Orthostatic intolerance [Unknown]
  - Dry eye [Unknown]
  - Micturition urgency [Unknown]
  - Decreased appetite [Unknown]
  - Disturbance in attention [Unknown]
  - Muscular weakness [Unknown]
  - Vomiting [Unknown]
  - Toxicity to various agents [Unknown]
  - Hypotension [Unknown]
  - Mydriasis [Unknown]
  - Sinusitis [Unknown]
  - Abdominal pain [Unknown]
  - Ulcerative keratitis [Unknown]
  - Insomnia [Unknown]
  - Gastrooesophageal reflux disease [Unknown]
  - Tendonitis [Unknown]
  - Migraine [Unknown]
  - Tachycardia [Unknown]
  - Dry mouth [Unknown]
  - Muscle contractions involuntary [Unknown]
  - Nausea [Unknown]
  - Sensory disturbance [Unknown]
  - Arthralgia [Unknown]
  - Alopecia [Unknown]
  - Respiratory muscle weakness [Unknown]
